FAERS Safety Report 12728770 (Version 1)
Quarter: 2016Q3

REPORT INFORMATION
  Report Type: Spontaneous
  Country: US (occurrence: US)
  Receive Date: 20160907
  Receipt Date: 20160907
  Transmission Date: 20161109
  Serious: No
  Sender: FDA-Public Use
  Company Number: None

PATIENT
  Age: 59 Year
  Sex: Male
  Weight: 124.2 kg

DRUGS (1)
  1. ROPINIROLE. [Suspect]
     Active Substance: ROPINIROLE
     Indication: RESTLESS LEGS SYNDROME

REACTIONS (1)
  - Bundle branch block [None]
